FAERS Safety Report 23494736 (Version 1)
Quarter: 2024Q1

REPORT INFORMATION
  Report Type: Spontaneous
  Country: GB (occurrence: GB)
  Receive Date: 20240207
  Receipt Date: 20240207
  Transmission Date: 20240410
  Serious: Yes (Other)
  Sender: FDA-Public Use
  Company Number: None

PATIENT
  Age: 13 Year
  Sex: Female
  Weight: 43 kg

DRUGS (6)
  1. PROPRANOLOL [Suspect]
     Active Substance: PROPRANOLOL HYDROCHLORIDE
     Indication: Migraine prophylaxis
     Dosage: TAKE ONE TABLET ONCE A DAY FOR ONE WEEK INCREAS..
     Route: 065
     Dates: start: 20240118
  2. SUMATRIPTAN [Concomitant]
     Active Substance: SUMATRIPTAN
     Dosage: INTO ONE NOSTRIL AS SOON AS POSS..., DURATION: 28 DAYS
     Dates: start: 20231222, end: 20240119
  3. CETIRIZINE [Concomitant]
     Active Substance: CETIRIZINE HYDROCHLORIDE
     Dosage: TIME INTERVAL: AS NECESSARY: ONCE A DAY FOR ITCH..., DURATION: 1 DAY
     Dates: start: 20240130, end: 20240131
  4. SALATAC [Concomitant]
     Dosage: TO AFFECTED AREA/S FOR UP TO 3...
     Dates: start: 20200903
  5. PIZOTYLINE [Concomitant]
     Active Substance: PIZOTYLINE
     Indication: Migraine prophylaxis
     Dosage: AT NIGHT
     Dates: start: 20240130
  6. ZOLMITRIPTAN [Concomitant]
     Active Substance: ZOLMITRIPTAN
     Dosage: TAKE ONE TABLET INITIALLY, FOLLOWED BY ONE TABL...
     Dates: start: 20240118

REACTIONS (3)
  - Rash [Unknown]
  - Erythema [Unknown]
  - Skin exfoliation [Unknown]

NARRATIVE: CASE EVENT DATE: 20240131
